FAERS Safety Report 21065794 (Version 2)
Quarter: 2022Q4

REPORT INFORMATION
  Report Type: Spontaneous
  Country: PT (occurrence: PT)
  Receive Date: 20220711
  Receipt Date: 20221019
  Transmission Date: 20230112
  Serious: Yes (Other)
  Sender: FDA-Public Use
  Company Number: PT-PFIZER INC-202200906371

PATIENT
  Age: 47 Year
  Sex: Female

DRUGS (2)
  1. SERTRALINE HYDROCHLORIDE [Suspect]
     Active Substance: SERTRALINE HYDROCHLORIDE
     Indication: Dysarthria
     Dosage: 100 MG, 1X/DAY/100 MILLIGRAM, QD (200 MG/DAY: 50+50+100)
     Route: 048
  2. SERTRALINE HYDROCHLORIDE [Suspect]
     Active Substance: SERTRALINE HYDROCHLORIDE
     Dosage: 50 MG/50 MILLIGRAM, Q2D (200 MG/DAY: 50+50+100)
     Route: 048

REACTIONS (10)
  - Conversion disorder [Unknown]
  - Iatrogenic injury [Unknown]
  - Anxiety [Unknown]
  - Insomnia [Unknown]
  - Irritability [Unknown]
  - Gait disturbance [Unknown]
  - Inappropriate affect [Unknown]
  - Drug ineffective [Unknown]
  - Drug dose titration not performed [Unknown]
  - Off label use [Unknown]

NARRATIVE: CASE EVENT DATE: 20200901
